FAERS Safety Report 8388633-1 (Version None)
Quarter: 2012Q2

REPORT INFORMATION
  Report Type: 
  Country: None (occurrence: None)
  Receive Date: 20120525
  Receipt Date: 20120516
  Transmission Date: 20120825
  Serious: Yes (Hospitalization, Disabling, Other)
  Sender: FDA-Public Use
  Company Number: US-MERCK-1201USA00810

PATIENT
  Age: 70 Year
  Sex: Female
  Weight: 62 kg

DRUGS (7)
  1. ALENDRONATE SODIUM [Suspect]
     Route: 065
     Dates: start: 20081129
  2. FOSAMAX [Suspect]
     Route: 048
     Dates: start: 20080530
  3. FOSAMAX [Suspect]
     Route: 048
     Dates: start: 20080530
  4. BONIVA [Suspect]
     Route: 048
     Dates: start: 20030101, end: 20100101
  5. ALENDRONATE SODIUM [Suspect]
     Route: 065
     Dates: start: 20080924
  6. FOSAMAX [Suspect]
     Indication: OSTEOPOROSIS
     Route: 048
     Dates: start: 20030101, end: 20090101
  7. FOSAMAX [Suspect]
     Indication: OSTEOPENIA
     Route: 048
     Dates: start: 20030101, end: 20090101

REACTIONS (18)
  - FEMUR FRACTURE [None]
  - THYROID DISORDER [None]
  - UTERINE DISORDER [None]
  - ADVERSE EVENT [None]
  - CATARACT [None]
  - PRIMARY HYPOTHYROIDISM [None]
  - ILIOTIBIAL BAND SYNDROME [None]
  - BACK PAIN [None]
  - BLADDER DISORDER [None]
  - POSTOPERATIVE FEVER [None]
  - HYPERTENSION [None]
  - TONSILLAR DISORDER [None]
  - MUMPS [None]
  - OSTEOARTHRITIS [None]
  - UPPER RESPIRATORY TRACT INFECTION [None]
  - MEASLES [None]
  - FOOT FRACTURE [None]
  - OEDEMA [None]
